FAERS Safety Report 6845129-3 (Version None)
Quarter: 2010Q3

REPORT INFORMATION
  Report Type: 
  Country: None (occurrence: None)
  Receive Date: 20100715
  Receipt Date: 20070824
  Transmission Date: 20110219
  Serious: No
  Sender: FDA-Public Use
  Company Number: US-PFIZER INC-2007068371

PATIENT
  Sex: Female
  Weight: 90.9 kg

DRUGS (9)
  1. CHANTIX [Suspect]
     Indication: SMOKING CESSATION THERAPY
     Dates: start: 20070806
  2. TOPAMAX [Concomitant]
  3. EFFEXOR [Concomitant]
  4. LEVOXYL [Concomitant]
  5. GLUCOPHAGE [Concomitant]
  6. NEXIUM [Concomitant]
  7. VALSARTAN [Concomitant]
  8. OXYBUTYNIN CHLORIDE [Concomitant]
  9. FISH OIL [Concomitant]

REACTIONS (1)
  - NAUSEA [None]
